FAERS Safety Report 15433345 (Version 1)
Quarter: 2018Q3

REPORT INFORMATION
  Report Type: Spontaneous
  Country: US (occurrence: US)
  Receive Date: 20180927
  Receipt Date: 20180927
  Transmission Date: 20181010
  Serious: No
  Sender: FDA-Public Use
  Company Number: US-BRISTOL-MYERS SQUIBB COMPANY-BMS-2018-088424

PATIENT
  Sex: Female
  Weight: 54.43 kg

DRUGS (1)
  1. KENALOG?40 [Suspect]
     Active Substance: TRIAMCINOLONE ACETONIDE
     Indication: PAIN
     Dosage: UNAVAILABLE
     Route: 008

REACTIONS (5)
  - Arthropathy [Unknown]
  - Product use issue [Unknown]
  - Piriformis syndrome [Unknown]
  - Product use in unapproved indication [Unknown]
  - Muscle atrophy [Unknown]
